FAERS Safety Report 9355112 (Version 1)
Quarter: 2013Q2

REPORT INFORMATION
  Report Type: Spontaneous
  Country: US (occurrence: US)
  Receive Date: 20130619
  Receipt Date: 20130619
  Transmission Date: 20140414
  Serious: Yes (Hospitalization)
  Sender: FDA-Public Use
  Company Number: US-SANOFI-AVENTIS-2013SA057115

PATIENT
  Age: 73 Year
  Sex: Female

DRUGS (6)
  1. LANTUS SOLOSTAR [Suspect]
     Dosage: TAKEN FROM:3-4 WEEKS DOSE:58 UNIT(S)
     Route: 051
  2. SOLOSTAR [Suspect]
     Dosage: TAKEN FROM:3-4 WEEKS
  3. LANTUS [Suspect]
  4. NOVOLOG [Suspect]
  5. XANAX [Concomitant]
  6. NOVOLIN 70/30 [Concomitant]

REACTIONS (6)
  - Cardiac disorder [Unknown]
  - Pain in extremity [Unknown]
  - Abdominal discomfort [Unknown]
  - Weight decreased [Unknown]
  - Blood glucose increased [Unknown]
  - Incorrect storage of drug [Unknown]
